FAERS Safety Report 17882967 (Version 1)
Quarter: 2020Q2

REPORT INFORMATION
  Report Type: Report from Study
  Country: US (occurrence: US)
  Receive Date: 20200610
  Receipt Date: 20200610
  Transmission Date: 20200714
  Serious: Yes (Hospitalization)
  Sender: FDA-Public Use
  Company Number: US-AUROBINDO-AUR-APL-2020-028080

PATIENT
  Age: 27 Year
  Sex: Female

DRUGS (19)
  1. ROPIVACAINE HYDROCHLORIDE 0.5% [Suspect]
     Active Substance: ROPIVACAINE HYDROCHLORIDE
     Indication: ANAESTHESIA
     Dosage: 25 MILLILITER
     Route: 008
  2. ACETAMINOPHEN. [Concomitant]
     Active Substance: ACETAMINOPHEN
     Indication: PAIN
     Dosage: UNK AS NEEDED
     Route: 048
  3. BUPIVACAINE HYDROCHLORIDE. [Suspect]
     Active Substance: BUPIVACAINE HYDROCHLORIDE
     Indication: ANAESTHESIA
     Dosage: 1.8 MILLILITER
  4. FENTANYL. [Suspect]
     Active Substance: FENTANYL
     Dosage: 85 MICROGRAM
     Route: 008
  5. OXYCODONE [Concomitant]
     Active Substance: OXYCODONE
     Dosage: 85 MILLIGRAM, ONCE A DAY
     Route: 048
  6. BUPIVACAINE;FENTANYL [Suspect]
     Active Substance: BUPIVACAINE\FENTANYL
     Indication: PRODUCT USED FOR UNKNOWN INDICATION
     Dosage: 10 ML/HR (0.0625% BUPIVACAINE WITH FENTANYL 4 MCG/ML)
     Route: 008
  7. OXYCODONE [Concomitant]
     Active Substance: OXYCODONE
     Indication: PAIN
     Dosage: UNK AS NEEDED
     Route: 048
  8. HYDROMORPHONE [Concomitant]
     Active Substance: HYDROMORPHONE
     Indication: PRODUCT USED FOR UNKNOWN INDICATION
     Dosage: 140 MICROGRAM
     Route: 008
  9. METHADONE [Suspect]
     Active Substance: METHADONE HYDROCHLORIDE
     Indication: PRODUCT USED FOR UNKNOWN INDICATION
     Dosage: 85 MILLIGRAM, DAILY
     Route: 065
  10. METHADONE [Suspect]
     Active Substance: METHADONE HYDROCHLORIDE
     Dosage: 165 MILLIGRAM, DAILY
     Route: 048
  11. METHADONE [Suspect]
     Active Substance: METHADONE HYDROCHLORIDE
     Dosage: 190 MILLIGRAM, DAILY
     Route: 065
  12. MORPHINE [Suspect]
     Active Substance: MORPHINE
     Indication: ANAESTHESIA
     Dosage: 200 MICROGRAM
  13. LIDOCAINE HCL AND EPINEPHRINE [Suspect]
     Active Substance: EPINEPHRINE\LIDOCAINE HYDROCHLORIDE
     Indication: PRODUCT USED FOR UNKNOWN INDICATION
     Dosage: 2% LIDOCAINE WITH I :200,000 EPINEPHRINE 13 ML
     Route: 008
  14. METHADONE [Suspect]
     Active Substance: METHADONE HYDROCHLORIDE
     Dosage: 165 MILLIGRAM, DAILY
     Route: 065
  15. FENTANYL. [Suspect]
     Active Substance: FENTANYL
     Indication: ANAESTHESIA
     Dosage: 10 MICROGRAM
  16. EPINEPHRINE. [Suspect]
     Active Substance: EPINEPHRINE
     Indication: ANAESTHESIA
     Dosage: 200 MICROGRAM
  17. MORPHINE [Suspect]
     Active Substance: MORPHINE
     Dosage: 2 MICROGRAM
     Route: 008
  18. KETOROLAC [Concomitant]
     Active Substance: KETOROLAC TROMETHAMINE
     Indication: PRODUCT USED FOR UNKNOWN INDICATION
     Dosage: UNK
     Route: 042
  19. IBUPROFEN. [Concomitant]
     Active Substance: IBUPROFEN
     Indication: PRODUCT USED FOR UNKNOWN INDICATION
     Dosage: UNK
     Route: 048

REACTIONS (2)
  - Maternal exposure during pregnancy [Unknown]
  - Hypokinesia [Unknown]
